FAERS Safety Report 7360232-X (Version None)
Quarter: 2011Q1

REPORT INFORMATION
  Report Type: 
  Country: None (occurrence: None)
  Receive Date: 20110307
  Receipt Date: 20110224
  Transmission Date: 20110831
  Serious: Yes (Hospitalization, Other)
  Sender: FDA-Public Use
  Company Number: VISP-NO-1103S-0081

PATIENT
  Age: 56 Year
  Sex: Female

DRUGS (2)
  1. VISIPAQUE [Suspect]
     Indication: PRODUCT USED FOR UNKNOWN INDICATION
     Dosage: , SINGLE DOSE
     Dates: start: 20110221, end: 20110221
  2. AMLODIPINE [Concomitant]

REACTIONS (2)
  - PRURITUS [None]
  - DIZZINESS [None]
